FAERS Safety Report 6222109-2 (Version None)
Quarter: 2009Q2

REPORT INFORMATION
  Report Type: 
  Country: None (occurrence: None)
  Receive Date: 20090608
  Receipt Date: 20090608
  Transmission Date: 20091009
  Serious: Yes (Life-Threatening, Hospitalization, Disabling, Other)
  Sender: FDA-Public Use
  Company Number: None

PATIENT
  Age: 36 Year
  Sex: Female
  Weight: 83.0083 kg

DRUGS (3)
  1. IBUPROFEN [Suspect]
     Indication: BREAST PAIN
     Dosage: 800 MG 3 DOSES TOTAL PO
     Route: 048
     Dates: start: 20090515, end: 20090516
  2. IBUPROFEN [Suspect]
     Indication: MASTITIS
     Dosage: 800 MG 3 DOSES TOTAL PO
     Route: 048
     Dates: start: 20090515, end: 20090516
  3. IBUPROFEN [Suspect]
     Indication: HEADACHE
     Dosage: 400 MG EVERY 8 HOURS PO
     Route: 048
     Dates: start: 20090524, end: 20090530

REACTIONS (14)
  - ABDOMINAL PAIN UPPER [None]
  - ANAEMIA [None]
  - ASTHENIA [None]
  - BLOOD PRESSURE INCREASED [None]
  - DYSPNOEA [None]
  - HEADACHE [None]
  - LIVER FUNCTION TEST ABNORMAL [None]
  - OEDEMA [None]
  - RASH ERYTHEMATOUS [None]
  - RASH GENERALISED [None]
  - RENAL FUNCTION TEST ABNORMAL [None]
  - SWELLING [None]
  - VOMITING [None]
  - WEIGHT INCREASED [None]
